FAERS Safety Report 20987813 (Version 4)
Quarter: 2023Q4

REPORT INFORMATION
  Report Type: Report from Study
  Country: GB (occurrence: GB)
  Receive Date: 20220621
  Receipt Date: 20231226
  Transmission Date: 20240109
  Serious: Yes (Other)
  Sender: FDA-Public Use
  Company Number: GB-NOVARTISPH-NVSC2022GB134815

PATIENT
  Age: 94 Year
  Sex: Male

DRUGS (2)
  1. ILARIS [Suspect]
     Active Substance: CANAKINUMAB
     Indication: Myocardial ischaemia
     Dosage: 150 MG, EVERY 6 WEEKS
     Route: 058
  2. ILARIS [Suspect]
     Active Substance: CANAKINUMAB
     Indication: Tumour necrosis factor receptor-associated periodic syndrome

REACTIONS (8)
  - Seizure [Unknown]
  - Pain in extremity [Unknown]
  - Illness [Unknown]
  - Restless legs syndrome [Unknown]
  - Electric shock sensation [Unknown]
  - Poor quality sleep [Unknown]
  - Abdominal pain [Not Recovered/Not Resolved]
  - Product use in unapproved indication [Unknown]
